FAERS Safety Report 6643139-2 (Version None)
Quarter: 2010Q1

REPORT INFORMATION
  Report Type: 
  Country: None (occurrence: None)
  Receive Date: 20100319
  Receipt Date: 20100309
  Transmission Date: 20100710
  Serious: Yes (Hospitalization)
  Sender: FDA-Public Use
  Company Number: PHHY2010AU09812

PATIENT
  Sex: Male

DRUGS (8)
  1. CLOZARIL [Suspect]
     Indication: SCHIZOPHRENIA
     Dosage: 100 MG, QD
     Dates: start: 20100115
  2. CLOZARIL [Suspect]
     Dosage: 200 MG, QD
     Dates: end: 20100203
  3. METFORMIN [Concomitant]
     Dosage: 750 MG, BID
  4. LEVOTHYROXINE SODIUM [Concomitant]
     Dosage: 100 MCG
  5. FISH OIL [Concomitant]
     Dosage: ONE CAPSULE DAILY
  6. VITAMIN D [Concomitant]
     Dosage: 1 DAILY
  7. PANTOPRAZOLE [Concomitant]
     Dosage: 40 MG DAILY
  8. DIAZEPAM [Concomitant]
     Dosage: 2.5 MG, QD
     Dates: start: 20100125, end: 20100129

REACTIONS (5)
  - CARDIAC DISORDER [None]
  - MYOCARDITIS [None]
  - NEUTROPHIL COUNT INCREASED [None]
  - TROPONIN INCREASED [None]
  - WHITE BLOOD CELL COUNT INCREASED [None]
